FAERS Safety Report 4560104-X (Version None)
Quarter: 2005Q1

REPORT INFORMATION
  Report Type: 
  Country: None (occurrence: None)
  Receive Date: 20050120
  Receipt Date: 20050120
  Transmission Date: 20050727
  Serious: Yes (Other)
  Sender: FDA-Public Use
  Company Number: None

PATIENT
  Sex: Female
  Weight: 92.0802 kg

DRUGS (1)
  1. NECON 777 [Suspect]
     Indication: CONTRACEPTION
     Dosage: ONE PO QD O
     Route: 048
     Dates: start: 20041201

REACTIONS (2)
  - METRORRHAGIA [None]
  - MUSCLE SPASMS [None]
